FAERS Safety Report 12395702 (Version 2)
Quarter: 2016Q2

REPORT INFORMATION
  Report Type: Spontaneous
  Country: US (occurrence: US)
  Receive Date: 20160523
  Receipt Date: 20160614
  Transmission Date: 20160815
  Serious: Yes (Death, Life-Threatening, Hospitalization, Congenital Anomaly)
  Sender: FDA-Public Use
  Company Number: US-ACTELION-A-US2016-136558

PATIENT
  Age: 5 Year
  Sex: Female

DRUGS (3)
  1. SILDENAFIL. [Concomitant]
     Active Substance: SILDENAFIL
     Dosage: 10 MG, TID (1/2 OF THE 20 MG TABLET)
     Dates: start: 20160315, end: 20160319
  2. TRACLEER [Suspect]
     Active Substance: BOSENTAN
     Dosage: 31.25 MG, QD
     Route: 048
     Dates: start: 20160502
  3. TRACLEER [Suspect]
     Active Substance: BOSENTAN
     Indication: PULMONARY ARTERIAL HYPERTENSION
     Dosage: 31.25 MG, BID
     Route: 048
     Dates: start: 20160312

REACTIONS (7)
  - Vascular resistance pulmonary [Fatal]
  - Cerebrovascular accident [Fatal]
  - Brain herniation [Fatal]
  - Post procedural complication [Not Recovered/Not Resolved]
  - Patent ductus arteriosus repair [Unknown]
  - Pulmonary hypertensive crisis [Fatal]
  - Cardiac failure [Fatal]

NARRATIVE: CASE EVENT DATE: 20160515
